FAERS Safety Report 7004206-7 (Version None)
Quarter: 2010Q3

REPORT INFORMATION
  Report Type: 
  Country: None (occurrence: None)
  Receive Date: 20100920
  Receipt Date: 20100209
  Transmission Date: 20110219
  Serious: No
  Sender: FDA-Public Use
  Company Number: US-WYE-H13591510

PATIENT
  Sex: Male
  Weight: 97.61 kg

DRUGS (5)
  1. PRISTIQ [Suspect]
     Indication: PANIC ATTACK
     Route: 048
     Dates: start: 20100131
  2. PRISTIQ [Suspect]
     Indication: DEPRESSION
  3. NEXIUM [Concomitant]
  4. CLONAZEPAM [Concomitant]
  5. DILTIAZEM [Concomitant]

REACTIONS (4)
  - ABDOMINAL DISTENSION [None]
  - ABDOMINAL PAIN UPPER [None]
  - CONSTIPATION [None]
  - NAUSEA [None]
